FAERS Safety Report 4640739-6 (Version None)
Quarter: 2005Q2

REPORT INFORMATION
  Report Type: 
  Country: None (occurrence: None)
  Receive Date: 20050322
  Receipt Date: 20040802
  Transmission Date: 20051028
  Serious: Yes (Hospitalization)
  Sender: FDA-Public Use
  Company Number: HQWYE830704AUG04

PATIENT
  Age: 57 Year
  Sex: Male
  Weight: 68.1 kg

DRUGS (6)
  1. PROTONIX [Suspect]
     Indication: GASTROINTESTINAL HAEMORRHAGE
     Dosage: 40 MG 2X PER 1 DAY, ORAL
     Route: 048
     Dates: start: 20040726, end: 20040802
  2. PROTONIX [Suspect]
     Indication: PEPTIC ULCER
     Dosage: 40 MG 2X PER 1 DAY, ORAL
     Route: 048
     Dates: start: 20040726, end: 20040802
  3. DEMEROL [Concomitant]
  4. PHENERGAN [Concomitant]
  5. LORTAB [Concomitant]
  6. ADVIL [Concomitant]

REACTIONS (1)
  - HEPATITIS [None]
